FAERS Safety Report 12801432 (Version 1)
Quarter: 2016Q4

REPORT INFORMATION
  Report Type: Report from Study
  Country: US (occurrence: US)
  Receive Date: 20161003
  Receipt Date: 20161003
  Transmission Date: 20170207
  Serious: Yes (Other)
  Sender: FDA-Public Use
  Company Number: US-AMGEN-USASL2016132820

PATIENT

DRUGS (1)
  1. KYPROLIS [Suspect]
     Active Substance: CARFILZOMIB
     Indication: PRODUCT USED FOR UNKNOWN INDICATION
     Dosage: UNK
     Route: 065

REACTIONS (31)
  - Anaemia [Unknown]
  - Cellulitis [Unknown]
  - Angina pectoris [Unknown]
  - Hyperkalaemia [Unknown]
  - Embolism venous [Unknown]
  - Hypokalaemia [Unknown]
  - Arteriosclerosis coronary artery [Unknown]
  - Immunology test abnormal [Unknown]
  - Pyrexia [Unknown]
  - Subcutaneous abscess [Unknown]
  - Neutropenia [Unknown]
  - Oral disorder [Unknown]
  - Dyspnoea [Unknown]
  - Type 2 diabetes mellitus [Not Recovered/Not Resolved]
  - Chronic kidney disease [Unknown]
  - Osteomyelitis [Unknown]
  - Cardiac imaging procedure abnormal [Unknown]
  - Pancytopenia [Unknown]
  - Paraproteinaemia [Unknown]
  - Cough [Unknown]
  - Chest pain [Unknown]
  - Acute kidney injury [Unknown]
  - Coagulation test abnormal [Unknown]
  - Eosinophilia [Unknown]
  - Back pain [Unknown]
  - Pain [Unknown]
  - Essential hypertension [Unknown]
  - Oesophageal candidiasis [Unknown]
  - Cardiac failure [Unknown]
  - Atrial fibrillation [Unknown]
  - Gout [Unknown]

NARRATIVE: CASE EVENT DATE: 20131103
